FAERS Safety Report 23443885 (Version 2)
Quarter: 2024Q3

REPORT INFORMATION
  Report Type: Spontaneous
  Country: CZ (occurrence: CZ)
  Receive Date: 20240125
  Receipt Date: 20240704
  Transmission Date: 20241017
  Serious: Yes (Hospitalization, Other)
  Sender: PFIZER
  Company Number: None

PATIENT
  Age: 18 Year
  Sex: Female

DRUGS (2)
  1. CLINDAMYCIN PHOSPHATE [Interacting]
     Active Substance: CLINDAMYCIN PHOSPHATE
     Indication: Teething
     Dosage: UNK
     Dates: start: 2024
  2. QUETIAPINE [Interacting]
     Active Substance: QUETIAPINE
     Indication: Autism spectrum disorder
     Dosage: UNK (LONG-TERM, STABILIZED FOR 18 MONTHS WITHOUT COMPLICATIONS)

REACTIONS (5)
  - Drug interaction [Unknown]
  - Delusion [Unknown]
  - Irritability [Unknown]
  - Insomnia [Unknown]
  - Psychotic disorder [Unknown]

NARRATIVE: CASE EVENT DATE: 20240101
